FAERS Safety Report 8129201-6 (Version None)
Quarter: 2012Q1

REPORT INFORMATION
  Report Type: 
  Country: None (occurrence: None)
  Receive Date: 20120210
  Receipt Date: 20111115
  Transmission Date: 20120608
  Serious: No
  Sender: FDA-Public Use
  Company Number: US-BRISTOL-MYERS SQUIBB COMPANY-16232423

PATIENT
  Age: 60 Year
  Sex: Female
  Weight: 100 kg

DRUGS (2)
  1. ADVAIR DISKUS 100/50 [Concomitant]
     Indication: ASTHMA
     Dosage: ADVAIR 50-500 ORALLY FOR ASTHMA
     Route: 048
  2. ORENCIA [Suspect]
     Indication: RHEUMATOID ARTHRITIS
     Dosage: 10MG IV, QUANTITY 100, 250 MG VIA IV  ONCE A MONTH DATES: 01JUN2011,6SEP2011,04OCT2011
     Route: 042
     Dates: start: 20110601

REACTIONS (1)
  - STOMATITIS [None]
